FAERS Safety Report 9393667 (Version 4)
Quarter: 2014Q1

REPORT INFORMATION
  Report Type: Report from Study
  Country: JP (occurrence: JP)
  Receive Date: 20130710
  Receipt Date: 20140311
  Transmission Date: 20141002
  Serious: Yes (Other)
  Sender: FDA-Public Use
  Company Number: JP-GLAXOSMITHKLINE-B0906521A

PATIENT
  Age: 58 Year
  Sex: Female
  Weight: 49 kg

DRUGS (12)
  1. TYKERB [Suspect]
     Indication: BREAST CANCER
     Route: 048
     Dates: start: 20121221
  2. ZOMETA [Suspect]
     Route: 042
     Dates: end: 20120511
  3. XELODA [Concomitant]
     Indication: BREAST CANCER
     Route: 048
     Dates: start: 20121221, end: 20130103
  4. XELODA [Concomitant]
     Indication: BREAST CANCER
     Route: 048
     Dates: start: 20130111, end: 20130214
  5. XELODA [Concomitant]
     Indication: BREAST CANCER
     Route: 048
     Dates: start: 20130327
  6. RANMARK [Concomitant]
     Indication: BREAST CANCER
     Route: 058
  7. MAINTATE [Concomitant]
     Indication: CARDIAC FAILURE
     Route: 048
  8. ONEALFA [Concomitant]
     Indication: OSTEOPOROSIS
     Route: 048
  9. CRAVIT [Concomitant]
     Indication: OSTEOMYELITIS
     Route: 048
     Dates: start: 20130104, end: 20130109
  10. ALLELOCK [Concomitant]
     Indication: RHINITIS
     Route: 048
     Dates: start: 20130328, end: 20130423
  11. KENACORT [Concomitant]
     Indication: PAIN IN JAW
     Dates: start: 20131213, end: 20131213
  12. XYLOCAINE [Concomitant]
     Indication: PAIN IN JAW
     Dates: start: 20131213, end: 20131213

REACTIONS (10)
  - Osteonecrosis of jaw [Recovered/Resolved]
  - Neurogenic bladder [Not Recovered/Not Resolved]
  - IIIrd nerve paralysis [Recovering/Resolving]
  - Cancer pain [Not Recovered/Not Resolved]
  - Paronychia [Recovered/Resolved]
  - Abdominal discomfort [Recovering/Resolving]
  - Haematuria [Recovering/Resolving]
  - Urinary tract infection [Recovering/Resolving]
  - Hypotension [Recovering/Resolving]
  - Rash [Recovering/Resolving]
